FAERS Safety Report 10287843 (Version 2)
Quarter: 2015Q3

REPORT INFORMATION
  Report Type: Spontaneous
  Country: US (occurrence: US)
  Receive Date: 20140709
  Receipt Date: 20150814
  Transmission Date: 20151125
  Serious: No
  Sender: FDA-Public Use
  Company Number: US-GILEAD-2013-0081325

PATIENT
  Age: 61 Year
  Sex: Female

DRUGS (14)
  1. IMURAN [Concomitant]
     Active Substance: AZATHIOPRINE
  2. ADVAIR HFA [Concomitant]
     Active Substance: FLUTICASONE PROPIONATE\SALMETEROL XINAFOATE
  3. PLAQUENIL [Concomitant]
     Active Substance: HYDROXYCHLOROQUINE SULFATE
  4. REVATIO [Concomitant]
     Active Substance: SILDENAFIL CITRATE
  5. LASIX [Concomitant]
     Active Substance: FUROSEMIDE
  6. MUCINEX [Concomitant]
     Active Substance: GUAIFENESIN
  7. LETAIRIS [Suspect]
     Active Substance: AMBRISENTAN
     Indication: PULMONARY HYPERTENSION
     Dosage: 10 MG, QD
     Dates: start: 20130727, end: 20130801
  8. PEPCID                             /00305201/ [Concomitant]
     Active Substance: ALUMINUM HYDROXIDE\MAGNESIUM CARBONATE
  9. PRINZIDE [Concomitant]
     Active Substance: HYDROCHLOROTHIAZIDE\LISINOPRIL
  10. SINGULAIR [Concomitant]
     Active Substance: MONTELUKAST SODIUM
  11. LODINE [Concomitant]
     Active Substance: ETODOLAC
  12. POTASSIUM [Concomitant]
     Active Substance: POTASSIUM
  13. NORCO [Concomitant]
     Active Substance: ACETAMINOPHEN\HYDROCODONE BITARTRATE
  14. LEVOTHROID [Concomitant]
     Active Substance: LEVOTHYROXINE SODIUM

REACTIONS (11)
  - Pyrexia [Unknown]
  - Diarrhoea [Unknown]
  - Nausea [Unknown]
  - Rash [Unknown]
  - Dyspnoea [Unknown]
  - Dizziness [Unknown]
  - Chills [Unknown]
  - Gait disturbance [Unknown]
  - Limb discomfort [Unknown]
  - Oedema [Unknown]
  - Headache [Unknown]

NARRATIVE: CASE EVENT DATE: 20130731
